FAERS Safety Report 10073643 (Version 2)
Quarter: 2014Q2

REPORT INFORMATION
  Report Type: Spontaneous
  Country: JP (occurrence: JP)
  Receive Date: 20140411
  Receipt Date: 20140521
  Transmission Date: 20141212
  Serious: Yes (Life-Threatening)
  Sender: FDA-Public Use
  Company Number: JP-EISAI INC-E7389-04981-SPO-JP

PATIENT
  Age: 74 Year
  Sex: Female
  Weight: 36 kg

DRUGS (4)
  1. HALAVEN [Suspect]
     Indication: BREAST CANCER
     Dosage: 1.4MG/M2
     Route: 041
     Dates: start: 20131210, end: 20140310
  2. DEXART [Concomitant]
     Indication: PROPHYLAXIS OF NAUSEA AND VOMITING
     Dates: start: 20131210, end: 20140310
  3. FOSAMAC [Concomitant]
     Indication: PRODUCT USED FOR UNKNOWN INDICATION
     Dosage: 5 MG/DAY
     Route: 048
     Dates: start: 20111122, end: 20140310
  4. MADOPAR [Concomitant]
     Dosage: 5 DF/DAILY
     Route: 048

REACTIONS (1)
  - Haemobilia [Recovered/Resolved]
